FAERS Safety Report 6688607-2 (Version None)
Quarter: 2010Q2

REPORT INFORMATION
  Report Type: 
  Country: None (occurrence: None)
  Receive Date: 20100420
  Receipt Date: 20100409
  Transmission Date: 20101027
  Serious: Yes (Hospitalization)
  Sender: FDA-Public Use
  Company Number: IT-ELI_LILLY_AND_COMPANY-IT201004002697

PATIENT
  Sex: Male

DRUGS (1)
  1. LISPRO [Suspect]
     Indication: TYPE 1 DIABETES MELLITUS
     Dosage: 34 U, DAILY (1/D)
     Route: 058
     Dates: start: 20100103, end: 20100303

REACTIONS (3)
  - HYPERHIDROSIS [None]
  - HYPOGLYCAEMIA [None]
  - SOPOR [None]
